FAERS Safety Report 24607721 (Version 1)
Quarter: 2024Q4

REPORT INFORMATION
  Report Type: Spontaneous
  Country: IT (occurrence: IT)
  Receive Date: 20241112
  Receipt Date: 20241112
  Transmission Date: 20250115
  Serious: Yes (Hospitalization)
  Sender: JOHNSON AND JOHNSON
  Company Number: IT-VIIV HEALTHCARE-IT2024EME136948

PATIENT
  Sex: Male

DRUGS (3)
  1. RILPIVIRINE [Interacting]
     Active Substance: RILPIVIRINE
     Indication: Antiviral treatment
     Dosage: UNK UNK, Q2M
     Route: 065
  2. VOCABRIA [Interacting]
     Active Substance: CABOTEGRAVIR SODIUM
     Indication: Antiviral treatment
     Dosage: UNK UNK, Q2M
     Route: 065
  3. RETROVIR [Interacting]
     Active Substance: ZIDOVUDINE
     Indication: Antiviral treatment
     Dosage: UNK
     Route: 065

REACTIONS (3)
  - Ill-defined disorder [Unknown]
  - Labelled drug-drug interaction medication error [Unknown]
  - Product use in unapproved therapeutic environment [Unknown]
